FAERS Safety Report 5759987-7 (Version None)
Quarter: 2008Q2

REPORT INFORMATION
  Report Type: 
  Country: None (occurrence: None)
  Receive Date: 20080605
  Receipt Date: 20080528
  Transmission Date: 20081010
  Serious: Yes (Hospitalization)
  Sender: FDA-Public Use
  Company Number: US-BAXTER-2008BH005297

PATIENT
  Age: 71 Year
  Sex: Female

DRUGS (2)
  1. DIANEAL [Suspect]
     Indication: PERITONEAL DIALYSIS
     Dosage: DOSE UNIT:UNKNOWN
     Route: 033
     Dates: end: 20080501
  2. DIANEAL [Suspect]
     Indication: PERITONEAL DIALYSIS
     Dosage: DOSE UNIT:UNKNOWN
     Route: 033
     Dates: end: 20080501

REACTIONS (5)
  - DIVERTICULAR PERFORATION [None]
  - DIVERTICULITIS [None]
  - NAUSEA [None]
  - PERITONITIS BACTERIAL [None]
  - VOMITING [None]
